FAERS Safety Report 7810058-5 (Version None)
Quarter: 2011Q4

REPORT INFORMATION
  Report Type: 
  Country: None (occurrence: None)
  Receive Date: 20111012
  Receipt Date: 20111007
  Transmission Date: 20120403
  Serious: Yes (Other)
  Sender: FDA-Public Use
  Company Number: US-AMGEN-USASP2011043821

PATIENT
  Age: 63 Year
  Sex: Male
  Weight: 130.61 kg

DRUGS (1)
  1. NPLATE [Suspect]
     Indication: IDIOPATHIC THROMBOCYTOPENIC PURPURA
     Dosage: 1 MUG/KG, UNK
     Route: 058
     Dates: start: 20101019

REACTIONS (3)
  - B-CELL LYMPHOMA [None]
  - PRURITUS [None]
  - OEDEMA PERIPHERAL [None]
